FAERS Safety Report 13660377 (Version 1)
Quarter: 2017Q2

REPORT INFORMATION
  Report Type: Spontaneous
  Country: US (occurrence: US)
  Receive Date: 20170616
  Receipt Date: 20170616
  Transmission Date: 20170830
  Serious: No
  Sender: FDA-Public Use
  Company Number: US-FDC LIMITED-2016RIS00201

PATIENT
  Sex: Female

DRUGS (4)
  1. TIMOLOL MALEATE. [Suspect]
     Active Substance: TIMOLOL MALEATE
     Indication: INTRAOCULAR PRESSURE TEST ABNORMAL
     Dosage: 1 GTT, 1X/DAY, PER EYE
     Route: 047
     Dates: start: 1980
  2. TIMOLOL MALEATE. [Suspect]
     Active Substance: TIMOLOL MALEATE
     Indication: GLAUCOMA
  3. BLOOD PRESSURE PILL (UNSPECIFIED) [Suspect]
     Active Substance: UNSPECIFIED INGREDIENT
     Dosage: UNK
  4. AVASTIN [Concomitant]
     Active Substance: BEVACIZUMAB
     Indication: MACULAR DEGENERATION
     Dosage: EVERY 4 TO 6 WEEKS
     Route: 031

REACTIONS (2)
  - Incorrect product storage [Unknown]
  - Vision blurred [Recovered/Resolved]
